FAERS Safety Report 5645608-0 (Version None)
Quarter: 2008Q1

REPORT INFORMATION
  Report Type: 
  Country: None (occurrence: None)
  Receive Date: 20080229
  Receipt Date: 20080207
  Transmission Date: 20080703
  Serious: Yes (Other)
  Sender: FDA-Public Use
  Company Number: US-BAYER-200813319GPV

PATIENT

DRUGS (7)
  1. CAMPATH [Suspect]
     Indication: STEM CELL TRANSPLANT
     Route: 065
  2. FLUDARABINE [Suspect]
     Indication: STEM CELL TRANSPLANT
     Dosage: TOTAL DAILY DOSE: 30 MG/M2
     Route: 042
  3. MELPHALAN [Suspect]
     Indication: STEM CELL TRANSPLANT
     Dosage: TOTAL DAILY DOSE: 140 MG/M2
     Route: 042
  4. CYCLOSPORINE [Suspect]
     Indication: PROPHYLAXIS AGAINST GRAFT VERSUS HOST DISEASE
     Route: 065
  5. METHOTREXATE [Suspect]
     Indication: PROPHYLAXIS AGAINST GRAFT VERSUS HOST DISEASE
     Route: 065
  6. TACROLIMUS [Suspect]
     Indication: PROPHYLAXIS AGAINST GRAFT VERSUS HOST DISEASE
     Route: 065
  7. MYCOPHENOLATE MOFETIL [Suspect]
     Indication: PROPHYLAXIS AGAINST GRAFT VERSUS HOST DISEASE
     Route: 065

REACTIONS (2)
  - HYPERGLYCAEMIA [None]
  - RENAL DISORDER [None]
